FAERS Safety Report 7053142-9 (Version None)
Quarter: 2010Q4

REPORT INFORMATION
  Report Type: 
  Country: None (occurrence: None)
  Receive Date: 20101020
  Receipt Date: 20100914
  Transmission Date: 20110411
  Serious: No
  Sender: FDA-Public Use
  Company Number: US-MYLANLABS-2010S1016788

PATIENT
  Age: 49 Year
  Sex: Female

DRUGS (2)
  1. LIOTHYRONINE SODIUM [Suspect]
     Indication: HYPOTHYROIDISM
     Route: 048
     Dates: start: 20100420
  2. LIOTHYRONINE SODIUM [Suspect]
     Route: 048
     Dates: end: 20100908

REACTIONS (6)
  - GENERALISED OEDEMA [None]
  - HAIR TEXTURE ABNORMAL [None]
  - INFLUENZA LIKE ILLNESS [None]
  - LETHARGY [None]
  - REACTION TO DRUG EXCIPIENTS [None]
  - WEIGHT INCREASED [None]
